FAERS Safety Report 9030504 (Version 7)
Quarter: 2013Q2

REPORT INFORMATION
  Report Type: Spontaneous
  Country: US (occurrence: US)
  Receive Date: 20130122
  Receipt Date: 20130416
  Transmission Date: 20140414
  Serious: No
  Sender: FDA-Public Use
  Company Number: US-VERTEX PHARMACEUTICALS INC.-2013-000900

PATIENT
  Age: 47 Year
  Sex: Female
  Weight: 68 kg

DRUGS (10)
  1. INCIVEK [Suspect]
     Indication: HEPATITIS C
     Dosage: 750 MG, TID
     Route: 048
     Dates: start: 20130103, end: 20130327
  2. RIBAVIRIN [Suspect]
     Indication: HEPATITIS C
     Dosage: 600MG AM, 400MG PM
     Route: 048
     Dates: start: 20130103
  3. PEGASYS [Suspect]
     Indication: HEPATITIS C
     Dosage: 135 ?G, QW
     Route: 058
     Dates: start: 20130103
  4. PEGASYS [Suspect]
     Dosage: 180 ?G, QW
     Route: 058
     Dates: start: 20130131
  5. MOBIC [Concomitant]
     Indication: INTERVERTEBRAL DISC DEGENERATION
     Route: 048
  6. MOBIC [Concomitant]
     Indication: PAIN
  7. MOBIC [Concomitant]
     Indication: BACK PAIN
  8. NORCO [Concomitant]
     Indication: PAIN
  9. TRAZODONE [Concomitant]
     Dosage: 50 MG, QD
  10. KLONOPIN [Concomitant]
     Dosage: 1 MG, QD
     Route: 048

REACTIONS (11)
  - Inappropriate schedule of drug administration [Recovered/Resolved]
  - Weight decreased [Unknown]
  - Oral pain [Recovered/Resolved]
  - Pyrexia [Not Recovered/Not Resolved]
  - Malaise [Recovered/Resolved]
  - Decreased appetite [Unknown]
  - Fatigue [Unknown]
  - Red blood cell count decreased [Not Recovered/Not Resolved]
  - Haemoglobin decreased [Not Recovered/Not Resolved]
  - Haematocrit decreased [Not Recovered/Not Resolved]
  - Nausea [Recovered/Resolved]
